FAERS Safety Report 12589596 (Version 2)
Quarter: 2016Q4

REPORT INFORMATION
  Report Type: Report from Study
  Country: None (occurrence: US)
  Receive Date: 20160725
  Receipt Date: 20161118
  Transmission Date: 20170207
  Serious: Yes (Hospitalization)
  Sender: FDA-Public Use
  Company Number: US-ABBVIE-16K-163-1677737-00

PATIENT
  Age: 31 Year
  Sex: Female
  Weight: 68.1 kg

DRUGS (2)
  1. HUMIRA [Suspect]
     Active Substance: ADALIMUMAB
     Indication: CROHN^S DISEASE
     Dosage: LOADING DOSE
     Route: 058
     Dates: start: 20160620, end: 20160620
  2. HUMIRA [Suspect]
     Active Substance: ADALIMUMAB
     Dosage: SECOND DOSE
     Route: 058
     Dates: start: 20160704, end: 20160704

REACTIONS (9)
  - Colitis [Recovered/Resolved]
  - Conjunctivitis [Recovered/Resolved]
  - Injection site pruritus [Recovered/Resolved]
  - Decreased appetite [Recovered/Resolved]
  - Hypotension [Recovered/Resolved]
  - Injection site rash [Recovered/Resolved]
  - Crohn^s disease [Recovered/Resolved]
  - Vomiting [Recovered/Resolved]
  - Colitis [Recovering/Resolving]

NARRATIVE: CASE EVENT DATE: 20160620
